FAERS Safety Report 10488481 (Version 2)
Quarter: 2014Q4

REPORT INFORMATION
  Report Type: Spontaneous
  Country: US (occurrence: None)
  Receive Date: 20140924
  Receipt Date: 20141020
  Transmission Date: 20150528
  Serious: Yes (Hospitalization)
  Sender: FDA-Public Use
  Company Number: GTI002536

PATIENT
  Age: 83 Year
  Sex: Male
  Weight: 70.31 kg

DRUGS (22)
  1. TRAMADOL [Concomitant]
     Active Substance: TRAMADOL
  2. GLIPIZIDE. [Concomitant]
     Active Substance: GLIPIZIDE
  3. CRANBERRY/01512301 [Concomitant]
  4. ROCEPHIN [Concomitant]
     Active Substance: CEFTRIAXONE SODIUM
  5. LISINOPRIL. [Concomitant]
     Active Substance: LISINOPRIL
  6. LEVOTHYROXINE SODIUM. [Concomitant]
     Active Substance: LEVOTHYROXINE SODIUM
  7. MULTIVITAMIN/00097801/ [Concomitant]
  8. GUAIFENESIN W/DEXTROMETHORPHAN [Concomitant]
     Active Substance: DEXTROMETHORPHAN\GUAIFENESIN
  9. METOPROLOL [Concomitant]
     Active Substance: METOPROLOL
  10. SIMETHICONE [Concomitant]
     Active Substance: DIMETHICONE\SILICON DIOXIDE\SIMETHICONE
  11. MILK OF MAGNESIA [Concomitant]
     Active Substance: MAGNESIUM HYDROXIDE
  12. HYDROCODONE/APAP [Concomitant]
     Active Substance: ACETAMINOPHEN\HYDROCODONE
  13. LUTEIN0ZEXANTHIN [Concomitant]
  14. PROLASTIN-C [Suspect]
     Active Substance: .ALPHA.1-PROTEINASE INHIBITOR HUMAN
     Indication: ALPHA-1 ANTI-TRYPSIN DEFICIENCY
     Route: 042
     Dates: start: 201406
  15. VITAMIN B12 [Concomitant]
     Active Substance: CYANOCOBALAMIN
  16. AMIODARONE [Concomitant]
     Active Substance: AMIODARONE
  17. MAGNESIUM HYDROXIDE. [Concomitant]
     Active Substance: MAGNESIUM HYDROXIDE
  18. JANUVIA [Concomitant]
     Active Substance: SITAGLIPTIN PHOSPHATE
  19. ATORVASTATIN [Concomitant]
     Active Substance: ATORVASTATIN
  20. ASPIRIN. [Concomitant]
     Active Substance: ASPIRIN
  21. PRADAXA [Concomitant]
     Active Substance: DABIGATRAN ETEXILATE MESYLATE
  22. ALUMINUM HYDROXIDE. [Concomitant]
     Active Substance: ALUMINUM HYDROXIDE

REACTIONS (3)
  - Pyrexia [None]
  - Chills [None]
  - Device related infection [None]

NARRATIVE: CASE EVENT DATE: 20140904
